FAERS Safety Report 7712997-2 (Version None)
Quarter: 2011Q3

REPORT INFORMATION
  Report Type: 
  Country: None (occurrence: None)
  Receive Date: 20110826
  Receipt Date: 20110824
  Transmission Date: 20111222
  Serious: Yes (Death, Hospitalization, Other)
  Sender: FDA-Public Use
  Company Number: FR-BRISTOL-MYERS SQUIBB COMPANY-15945082

PATIENT
  Age: 71 Year
  Sex: Male

DRUGS (1)
  1. BELATACEPT [Suspect]
     Indication: RENAL TRANSPLANT
     Route: 042
     Dates: start: 20060113, end: 20110405

REACTIONS (6)
  - SEPTIC SHOCK [None]
  - CYTOMEGALOVIRUS INFECTION [None]
  - CANDIDIASIS [None]
  - STAPHYLOCOCCAL SEPSIS [None]
  - PNEUMOCYSTIS JIROVECI PNEUMONIA [None]
  - MULTI-ORGAN FAILURE [None]
